FAERS Safety Report 12537794 (Version 1)
Quarter: 2016Q3

REPORT INFORMATION
  Report Type: Spontaneous
  Country: MA (occurrence: MA)
  Receive Date: 20160707
  Receipt Date: 20160707
  Transmission Date: 20161109
  Serious: Yes (Death, Hospitalization, Other)
  Sender: FDA-Public Use
  Company Number: MA-INCYTE CORPORATION-2016IN003997

PATIENT
  Sex: Male

DRUGS (3)
  1. JAKAFI [Suspect]
     Active Substance: RUXOLITINIB
     Indication: MYELOFIBROSIS
     Dosage: 15 MG, BID (TWICE DAILY)
     Route: 048
     Dates: start: 201506
  2. JAKAFI [Suspect]
     Active Substance: RUXOLITINIB
     Dosage: 10 MG, BID (TWICE A DAY)
     Route: 048
  3. REVOLADE [Concomitant]
     Active Substance: ELTROMBOPAG
     Indication: PRODUCT USED FOR UNKNOWN INDICATION
     Dosage: UNK
     Route: 065

REACTIONS (5)
  - Femur fracture [Unknown]
  - Thrombocytopenia [Unknown]
  - Cerebral haemorrhage [Fatal]
  - Blast cell crisis [Fatal]
  - Fall [Unknown]
